FAERS Safety Report 24678892 (Version 5)
Quarter: 2025Q3

REPORT INFORMATION
  Report Type: Spontaneous
  Country: EU (occurrence: EU)
  Receive Date: 20241129
  Receipt Date: 20250716
  Transmission Date: 20251020
  Serious: Yes (Other)
  Sender: UCB
  Company Number: EU-UCBSA-2024061185

PATIENT
  Sex: Female

DRUGS (10)
  1. BIMZELX [Suspect]
     Active Substance: BIMEKIZUMAB-BKZX
     Indication: Psoriatic arthropathy
     Dosage: UNK
     Route: 058
     Dates: start: 20240328, end: 20250107
  2. METHOTREXATE SODIUM [Concomitant]
     Active Substance: METHOTREXATE SODIUM
     Indication: Pain
     Route: 058
     Dates: start: 202311
  3. METHOTREXATE SODIUM [Concomitant]
     Active Substance: METHOTREXATE SODIUM
     Indication: Swelling
     Route: 058
     Dates: start: 202312
  4. METHOTREXATE SODIUM [Concomitant]
     Active Substance: METHOTREXATE SODIUM
     Route: 058
     Dates: start: 202402
  5. METHOTREXATE SODIUM [Concomitant]
     Active Substance: METHOTREXATE SODIUM
     Dosage: 7.5 MILLIGRAM, 2X/WEEK
     Route: 058
     Dates: start: 202403
  6. METHOTREXATE SODIUM [Concomitant]
     Active Substance: METHOTREXATE SODIUM
     Dosage: 17.5 MILLIGRAM, WEEKLY (QW)
     Route: 058
     Dates: start: 202407
  7. IBUPROFEN [Concomitant]
     Active Substance: IBUPROFEN
     Indication: Pain
  8. IBUPROFEN [Concomitant]
     Active Substance: IBUPROFEN
     Indication: Swelling
  9. TILIDINE [Concomitant]
     Active Substance: TILIDINE
     Indication: Pain
  10. TILIDINE [Concomitant]
     Active Substance: TILIDINE
     Indication: Swelling

REACTIONS (5)
  - Psoriatic arthropathy [Recovered/Resolved]
  - Suicidal ideation [Recovered/Resolved]
  - Depression [Recovered/Resolved]
  - Alopecia [Recovered/Resolved]
  - Drug ineffective [Unknown]

NARRATIVE: CASE EVENT DATE: 20240101
